FAERS Safety Report 24924442 (Version 1)
Quarter: 2025Q1

REPORT INFORMATION
  Report Type: Spontaneous
  Country: US (occurrence: US)
  Receive Date: 20250204
  Receipt Date: 20250204
  Transmission Date: 20250409
  Serious: No
  Sender: BLUEPRINT MEDICINES
  Company Number: US-Blueprint Medicines Corporation-2025-AER-00202

PATIENT
  Age: 81 Year
  Sex: Female

DRUGS (1)
  1. AYVAKIT [Suspect]
     Active Substance: AVAPRITINIB
     Indication: Mastocytoma
     Dosage: 100MG / TAKE 1 TABLET BY MOUTH ONCE DAILY
     Route: 048
     Dates: start: 20230123

REACTIONS (2)
  - Cyst [Unknown]
  - Off label use [Unknown]
